FAERS Safety Report 9605978 (Version 1)
Quarter: 2013Q4

REPORT INFORMATION
  Report Type: Spontaneous
  Country: US (occurrence: US)
  Receive Date: 20131008
  Receipt Date: 20131008
  Transmission Date: 20140711
  Serious: No
  Sender: FDA-Public Use
  Company Number: US-AMGEN-USASP2013038088

PATIENT
  Age: 81 Year
  Sex: Female

DRUGS (10)
  1. PROLIA [Suspect]
     Indication: OSTEOPENIA
     Dosage: UNK
     Dates: start: 20130318
  2. ZOCOR [Concomitant]
  3. COD LIVER OIL [Concomitant]
  4. VITAMIN C                          /00008001/ [Concomitant]
  5. CALCIUM [Concomitant]
  6. MULTIVITAMIN                       /00097801/ [Concomitant]
  7. RESTASIS [Concomitant]
  8. VITAMIN D                          /00107901/ [Concomitant]
  9. SUPER B COMPLEX                    /01995301/ [Concomitant]
  10. GINKGO BILOBA [Concomitant]

REACTIONS (1)
  - Pain in extremity [Unknown]
